FAERS Safety Report 26077938 (Version 1)
Quarter: 2025Q4

REPORT INFORMATION
  Report Type: Spontaneous
  Country: US (occurrence: US)
  Receive Date: 20251122
  Receipt Date: 20251122
  Transmission Date: 20260118
  Serious: No
  Sender: MDD OPERATIONS
  Company Number: US-MDD US Operations-MDD202510-004409

PATIENT
  Sex: Male

DRUGS (8)
  1. ONAPGO [Suspect]
     Active Substance: APOMORPHINE HYDROCHLORIDE
     Indication: Product used for unknown indication
     Dosage: WEARING IT, TYPICALLY, 11 TO 12 HOURS A DAY
     Dates: start: 20251021
  2. ONAPGO [Suspect]
     Active Substance: APOMORPHINE HYDROCHLORIDE
     Dosage: WEARING IT, TYPICALLY, 11 TO 12 HOURS A DAY.
     Dates: start: 20250923
  3. APOKYN [Suspect]
     Active Substance: APOMORPHINE HYDROCHLORIDE
     Indication: Product used for unknown indication
     Dosage: 0.4ML AS NECESSARY (PRN)
  4. CARBIDOPA\LEVODOPA [Concomitant]
     Active Substance: CARBIDOPA\LEVODOPA
     Indication: Parkinson^s disease
     Dosage: 4 TIMES A DAY
  5. ROPINIROLE [Concomitant]
     Active Substance: ROPINIROLE
     Indication: Parkinson^s disease
     Dosage: TAKES 2 IN THE MORNING, 4MG IN LUNCH TIME AND 2MG IN THE EVENING (3 TIMES A DAY)
  6. ROPINIROLE [Concomitant]
     Active Substance: ROPINIROLE
     Dosage: TAKES 2 IN THE MORNING, 4MG IN LUNCH TIME AND 2MG IN THE EVENING (3 TIMES A DAY)
  7. ROPINIROLE [Concomitant]
     Active Substance: ROPINIROLE
     Dosage: TAKES 2 IN THE MORNING, 4MG IN LUNCH TIME AND 2MG IN THE EVENING (3 TIMES A DAY)
  8. MIDODRINE [Concomitant]
     Active Substance: MIDODRINE
     Indication: Blood pressure measurement
     Dosage: 3 TIMES A DAY FOR BLOOD PRESSURE

REACTIONS (2)
  - Movement disorder [Unknown]
  - Drug ineffective [Unknown]

NARRATIVE: CASE EVENT DATE: 20251022
